FAERS Safety Report 4934144-2 (Version None)
Quarter: 2006Q1

REPORT INFORMATION
  Report Type: 
  Country: None (occurrence: None)
  Receive Date: 20060303
  Receipt Date: 20060220
  Transmission Date: 20060701
  Serious: Yes (Other)
  Sender: FDA-Public Use
  Company Number: 2005172437

PATIENT
  Sex: Female

DRUGS (4)
  1. NEURONTIN [Suspect]
     Indication: BIPOLAR DISORDER
     Dosage: 1500 MG, ORAL
     Route: 048
     Dates: start: 19980101
  2. ZYRTEC [Suspect]
     Indication: HYPERSENSITIVITY
     Dosage: 10 MG (10 MG, 1 IN 1 D), ORAL
     Route: 048
  3. ZOLOFT [Suspect]
     Indication: BIPOLAR DISORDER
     Dosage: 100 MG (100 MG, 1 IN 1 D), ORAL
     Route: 048
  4. DEMEROL [Suspect]
     Indication: ILL-DEFINED DISORDER

REACTIONS (5)
  - CYSTITIS [None]
  - DRUG EXPOSURE DURING PREGNANCY [None]
  - HYPOVENTILATION NEONATAL [None]
  - LAZINESS [None]
  - PSYCHOMOTOR SKILLS IMPAIRED [None]
